FAERS Safety Report 7331060-6 (Version None)
Quarter: 2011Q1

REPORT INFORMATION
  Report Type: 
  Country: None (occurrence: None)
  Receive Date: 20110304
  Receipt Date: 20100630
  Transmission Date: 20110831
  Serious: No
  Sender: FDA-Public Use
  Company Number: US-TYCO HEALTHCARE/MALLINCKRODT-T201001582

PATIENT
  Sex: Female

DRUGS (1)
  1. SODIUM IODIDE I 123 [Suspect]
     Dosage: 200 ?CI, SINGLE
     Route: 048
     Dates: start: 20100630, end: 20100630

REACTIONS (4)
  - ABDOMINAL PAIN UPPER [None]
  - OEDEMA PERIPHERAL [None]
  - CHEST PAIN [None]
  - HEADACHE [None]
